FAERS Safety Report 8083671-0 (Version None)
Quarter: 2012Q1

REPORT INFORMATION
  Report Type: 
  Country: None (occurrence: None)
  Receive Date: 20120127
  Receipt Date: 20110112
  Transmission Date: 20120608
  Serious: No
  Sender: FDA-Public Use
  Company Number: US-ABBOTT-11P-163-0696843-00

PATIENT
  Age: 26 Year
  Sex: Male

DRUGS (3)
  1. STEROIDS [Concomitant]
     Indication: PRODUCT USED FOR UNKNOWN INDICATION
  2. HUMIRA [Suspect]
     Indication: CROHN'S DISEASE
     Dates: start: 20100101
  3. PAIN MEDICATION [Concomitant]
     Indication: PAIN

REACTIONS (2)
  - DRUG INEFFECTIVE [None]
  - CROHN'S DISEASE [None]
